FAERS Safety Report 4729110-6 (Version None)
Quarter: 2005Q3

REPORT INFORMATION
  Report Type: 
  Country: None (occurrence: None)
  Receive Date: 20050729
  Receipt Date: 20040301
  Transmission Date: 20060218
  Serious: No
  Sender: FDA-Public Use
  Company Number: US-GLAXOSMITHKLINE-A0500599A

PATIENT
  Sex: Female

DRUGS (6)
  1. IMITREX [Suspect]
     Indication: MIGRAINE
     Dosage: 100MG AS REQUIRED
     Route: 048
  2. IMITREX [Suspect]
     Route: 065
  3. IMITREX [Suspect]
     Route: 065
  4. TOPAMAX [Concomitant]
     Indication: MIGRAINE PROPHYLAXIS
     Dosage: 100MG TWICE PER DAY
  5. VERAPAMIL [Concomitant]
     Indication: MIGRAINE PROPHYLAXIS
  6. FIORICET [Concomitant]
     Indication: TENSION HEADACHE

REACTIONS (5)
  - CONFUSIONAL STATE [None]
  - DYSARTHRIA [None]
  - MIGRAINE [None]
  - THERAPEUTIC RESPONSE DECREASED [None]
  - VOMITING [None]
